FAERS Safety Report 4441733-0 (Version None)
Quarter: 2004Q3

REPORT INFORMATION
  Report Type: 
  Country: None (occurrence: None)
  Receive Date: 20040907
  Receipt Date: 20040825
  Transmission Date: 20050211
  Serious: Yes (Other)
  Sender: FDA-Public Use
  Company Number: FR-JNJFOC-20040809714

PATIENT
  Age: 47 Year
  Sex: Female

DRUGS (5)
  1. INFLIXIMAB [Suspect]
     Indication: RHEUMATOID ARTHRITIS
     Route: 042
  2. METHOTREXATE [Concomitant]
     Indication: RHEUMATOID ARTHRITIS
  3. SYSTEMIC STEROIDS [Concomitant]
     Indication: RHEUMATOID ARTHRITIS
  4. ANTI-INFLAMMATORY [Concomitant]
     Indication: RHEUMATOID ARTHRITIS
  5. GOLD SALTS [Concomitant]
     Indication: RHEUMATOID ARTHRITIS

REACTIONS (1)
  - PSORIASIS [None]
